FAERS Safety Report 17578355 (Version 1)
Quarter: 2020Q1

REPORT INFORMATION
  Report Type: Spontaneous
  Country: IT (occurrence: IT)
  Receive Date: 20200324
  Receipt Date: 20200324
  Transmission Date: 20200409
  Serious: Yes (Life-Threatening, Other)
  Sender: FDA-Public Use
  Company Number: IT-FRESENIUS KABI-FK202002925

PATIENT
  Age: 64 Year
  Sex: Female

DRUGS (1)
  1. MORPHINE (MANUFACTURER UNKNOWN) [Suspect]
     Active Substance: MORPHINE
     Indication: PRODUCT USED FOR UNKNOWN INDICATION
     Dosage: UNKNOWN
     Route: 065

REACTIONS (5)
  - Multiple organ dysfunction syndrome [Recovered/Resolved]
  - Leukoencephalopathy [Unknown]
  - Hypoxia [Recovered/Resolved]
  - Hypotension [Recovered/Resolved]
  - Coma [Recovered/Resolved]
